FAERS Safety Report 13859945 (Version 1)
Quarter: 2017Q3

REPORT INFORMATION
  Report Type: Spontaneous
  Country: PL (occurrence: PL)
  Receive Date: 20170811
  Receipt Date: 20170811
  Transmission Date: 20171127
  Serious: Yes (Hospitalization)
  Sender: FDA-Public Use
  Company Number: PL-ROCHE-1974988

PATIENT
  Age: 45 Year
  Sex: Female

DRUGS (2)
  1. HERCEPTIN [Suspect]
     Active Substance: TRASTUZUMAB
     Indication: HER-2 POSITIVE BREAST CANCER
     Route: 058
  2. CARBOPLATIN. [Concomitant]
     Active Substance: CARBOPLATIN
     Indication: HER-2 POSITIVE BREAST CANCER

REACTIONS (3)
  - Genital haemorrhage [Unknown]
  - Vaginal haemorrhage [Unknown]
  - Uterine dilation and curettage [Unknown]
